FAERS Safety Report 7235168-5 (Version None)
Quarter: 2011Q1

REPORT INFORMATION
  Report Type: 
  Country: None (occurrence: None)
  Receive Date: 20110120
  Receipt Date: 20110106
  Transmission Date: 20110831
  Serious: Yes (Hospitalization)
  Sender: FDA-Public Use
  Company Number: FR-SANOFI-AVENTIS-2011SA000879

PATIENT
  Age: 76 Year
  Sex: Female

DRUGS (2)
  1. DIGOXINE [Concomitant]
  2. LASIX [Suspect]
     Dates: start: 20100517, end: 20100525

REACTIONS (1)
  - RENAL FAILURE ACUTE [None]
